FAERS Safety Report 5127424-1 (Version None)
Quarter: 2006Q4

REPORT INFORMATION
  Report Type: 
  Country: None (occurrence: None)
  Receive Date: 20061013
  Receipt Date: 20061013
  Transmission Date: 20070319
  Serious: Yes (Death, Hospitalization)
  Sender: FDA-Public Use
  Company Number: None

PATIENT
  Sex: Male
  Weight: 105.6881 kg

DRUGS (1)
  1. TAXOL [Suspect]
     Indication: METASTATIC GASTRIC CANCER
     Dosage: 80 MG/M2 = 160 MG INITIAL DOSE IV
     Route: 042
     Dates: start: 20060913

REACTIONS (6)
  - CARDIO-RESPIRATORY ARREST [None]
  - DISCOMFORT [None]
  - DRUG HYPERSENSITIVITY [None]
  - DYSPNOEA [None]
  - LOSS OF CONSCIOUSNESS [None]
  - RESPIRATORY DISTRESS [None]
